FAERS Safety Report 13895555 (Version 4)
Quarter: 2020Q4

REPORT INFORMATION
  Report Type: Spontaneous
  Country: US (occurrence: US)
  Receive Date: 20170823
  Receipt Date: 20201130
  Transmission Date: 20210113
  Serious: No
  Sender: FDA-Public Use
  Company Number: US-PFIZER INC-2017359129

PATIENT
  Age: 68 Year
  Sex: Female

DRUGS (1)
  1. METHOTREXATE SODIUM. [Suspect]
     Active Substance: METHOTREXATE SODIUM
     Indication: RHEUMATOID ARTHRITIS
     Dosage: UNK

REACTIONS (3)
  - Malaise [Unknown]
  - Drug hypersensitivity [Unknown]
  - Drug intolerance [Unknown]
